FAERS Safety Report 5088386-9 (Version None)
Quarter: 2006Q3

REPORT INFORMATION
  Report Type: 
  Country: None (occurrence: None)
  Receive Date: 20060822
  Receipt Date: 20060807
  Transmission Date: 20061208
  Serious: Yes (Other)
  Sender: FDA-Public Use
  Company Number: L06-TUR-03311-01

PATIENT

DRUGS (1)
  1. CARBAMAZEPINE [Suspect]

REACTIONS (1)
  - OSTEOPENIA [None]
